FAERS Safety Report 6770002-9 (Version None)
Quarter: 2010Q2

REPORT INFORMATION
  Report Type: 
  Country: None (occurrence: None)
  Receive Date: 20100520
  Receipt Date: 20090618
  Transmission Date: 20101027
  Serious: Yes (Other)
  Sender: FDA-Public Use
  Company Number: 2008075484

PATIENT
  Age: 59 Year
  Sex: Female

DRUGS (5)
  1. PROVERA [Suspect]
     Indication: HORMONE REPLACEMENT THERAPY
     Dosage: 10 MG, ORAL
     Route: 048
     Dates: start: 19960701, end: 20040701
  2. PREMARIN [Suspect]
     Indication: HORMONE REPLACEMENT THERAPY
     Dosage: 0.625 MG, VAGINAL
     Route: 067
     Dates: start: 19960701, end: 20040701
  3. PREMPRO [Suspect]
     Indication: HORMONE REPLACEMENT THERAPY
     Dosage: 2.5, 5MG, ORAL
     Route: 048
     Dates: start: 19981001, end: 20040101
  4. ESTRADIOL [Suspect]
     Indication: HORMONE REPLACEMENT THERAPY
     Dosage: 1 MG, ORAL
     Route: 048
     Dates: start: 19980101, end: 20040701
  5. PROMETRIUM [Suspect]
     Indication: HORMONE REPLACEMENT THERAPY
     Dosage: 100 MG ORAL
     Route: 048
     Dates: start: 19980101, end: 20040701

REACTIONS (1)
  - BREAST CANCER FEMALE [None]
